FAERS Safety Report 8580647-1 (Version None)
Quarter: 2012Q3

REPORT INFORMATION
  Report Type: 
  Country: None (occurrence: None)
  Receive Date: 20120809
  Receipt Date: 20120801
  Transmission Date: 20120928
  Serious: Yes (Hospitalization)
  Sender: FDA-Public Use
  Company Number: US-BIOGENIDEC-2012BI008164

PATIENT
  Age: 60 Year
  Sex: Female

DRUGS (3)
  1. AVONEX [Suspect]
     Indication: MULTIPLE SCLEROSIS
     Route: 030
     Dates: start: 19991008, end: 20030101
  2. AVONEX [Suspect]
     Route: 030
     Dates: start: 20030101, end: 20120101
  3. AVONEX [Suspect]
     Route: 030
     Dates: start: 20120608

REACTIONS (10)
  - SENSATION OF HEAVINESS [None]
  - FALL [None]
  - MENINGIOMA BENIGN [None]
  - PROCEDURAL COMPLICATION [None]
  - POST PROCEDURAL COMPLICATION [None]
  - AMNESIA [None]
  - COGNITIVE DISORDER [None]
  - ASTHENIA [None]
  - CONFUSION POSTOPERATIVE [None]
  - MULTIPLE SCLEROSIS RELAPSE [None]
